FAERS Safety Report 8562203-4 (Version None)
Quarter: 2012Q3

REPORT INFORMATION
  Report Type: 
  Country: None (occurrence: None)
  Receive Date: 20120802
  Receipt Date: 20120710
  Transmission Date: 20120928
  Serious: No
  Sender: FDA-Public Use
  Company Number: US-AMGEN-USASP2012042561

PATIENT
  Age: 47 Year
  Sex: Female

DRUGS (2)
  1. TREXALL [Concomitant]
     Dosage: 8 MG, UNK
  2. ENBREL [Suspect]
     Indication: RHEUMATOID ARTHRITIS
     Dosage: 50 MG, QWK
     Dates: start: 20110301

REACTIONS (6)
  - TOOTHACHE [None]
  - JOINT STIFFNESS [None]
  - INFLAMMATION [None]
  - PAIN IN EXTREMITY [None]
  - PARAESTHESIA [None]
  - HYPOAESTHESIA [None]
